FAERS Safety Report 25472596 (Version 6)
Quarter: 2025Q3

REPORT INFORMATION
  Report Type: Report from Study
  Country: US (occurrence: US)
  Receive Date: 20250624
  Receipt Date: 20250902
  Transmission Date: 20251021
  Serious: Yes (Other)
  Sender: SUNOVION
  Company Number: US-SUMITOMO PHARMA SWITZERLAND GMBH-2025SPA006855

PATIENT
  Age: 63 Year
  Sex: Male

DRUGS (18)
  1. ORGOVYX [Suspect]
     Active Substance: RELUGOLIX
     Indication: Prostate cancer
     Route: 048
  2. ORGOVYX [Suspect]
     Active Substance: RELUGOLIX
     Dosage: 120 MG, QD
     Route: 048
     Dates: start: 202505
  3. GEMTESA [Suspect]
     Active Substance: VIBEGRON
     Indication: Product used for unknown indication
  4. ADVIL [Concomitant]
     Active Substance: IBUPROFEN
  5. AMLODIPINE BESYLATE [Concomitant]
     Active Substance: AMLODIPINE BESYLATE
  6. CELEBREX [Concomitant]
     Active Substance: CELECOXIB
  7. LOSARTAN POTASSIUM [Concomitant]
     Active Substance: LOSARTAN POTASSIUM
  8. HERBALS\PLANTAGO OVATA LEAF [Concomitant]
     Active Substance: HERBALS\PLANTAGO OVATA LEAF
  9. ROSUVASTATIN CALCIUM [Concomitant]
     Active Substance: ROSUVASTATIN CALCIUM
  10. SILDENAFIL CITRATE [Concomitant]
     Active Substance: SILDENAFIL CITRATE
  11. ASPIRIN [Concomitant]
     Active Substance: ASPIRIN
  12. TADALAFIL [Concomitant]
     Active Substance: TADALAFIL
  13. TUMS [Concomitant]
     Active Substance: CALCIUM CARBONATE
  14. TYLENOL [Concomitant]
     Active Substance: ACETAMINOPHEN
  15. ABIRATERONE [Concomitant]
     Active Substance: ABIRATERONE
  16. PREDNISONE [Concomitant]
     Active Substance: PREDNISONE
  17. Metamucil 4 in 1 fiber [Concomitant]
  18. PEPTO-BISMOL [Concomitant]
     Active Substance: BISMUTH SUBSALICYLATE

REACTIONS (8)
  - Sialoadenitis [Unknown]
  - Ear infection [Unknown]
  - Dental caries [Unknown]
  - Nocturia [Unknown]
  - Dyspepsia [Unknown]
  - Abdominal discomfort [Unknown]
  - Nausea [Unknown]
  - Hot flush [Unknown]
